FAERS Safety Report 4995047-0 (Version None)
Quarter: 2006Q2

REPORT INFORMATION
  Report Type: 
  Country: None (occurrence: None)
  Receive Date: 20060508
  Receipt Date: 20060426
  Transmission Date: 20061013
  Serious: Yes (Hospitalization)
  Sender: FDA-Public Use
  Company Number: FR-GLAXOSMITHKLINE-B0421892A

PATIENT
  Age: 84 Year
  Sex: Male
  Weight: 69 kg

DRUGS (8)
  1. PAROXETINE HYDROCHLORIDE [Suspect]
     Dosage: 20MG PER DAY
     Route: 048
     Dates: start: 20050922, end: 20050928
  2. CORDARONE [Concomitant]
     Indication: ATRIAL FLUTTER
     Dosage: 1UNIT PER DAY
     Route: 048
  3. LEVOTHYROX [Concomitant]
     Route: 048
     Dates: start: 20050901, end: 20051003
  4. COVERSYL [Concomitant]
     Indication: ESSENTIAL HYPERTENSION
     Dosage: 1UNIT PER DAY
     Route: 048
  5. LOXEN [Concomitant]
     Indication: ESSENTIAL HYPERTENSION
     Dosage: 2UNIT PER DAY
     Route: 048
  6. PRAVASTATIN [Concomitant]
     Dosage: 1UNIT PER DAY
     Route: 048
  7. ANTIVITAMINS K [Concomitant]
     Indication: ATRIAL FLUTTER
  8. MYSOLINE [Concomitant]
     Indication: TREMOR

REACTIONS (3)
  - BALANCE DISORDER [None]
  - FALL [None]
  - SOMNOLENCE [None]
